APPROVED DRUG PRODUCT: DIAZEPAM
Active Ingredient: DIAZEPAM
Strength: 5MG/ML
Dosage Form/Route: INJECTABLE;INJECTION
Application: A072371 | Product #001
Applicant: MARSAM PHARMACEUTICALS LLC
Approved: Jan 29, 1993 | RLD: No | RS: No | Type: DISCN